FAERS Safety Report 6451722-2 (Version None)
Quarter: 2009Q4

REPORT INFORMATION
  Report Type: 
  Country: None (occurrence: None)
  Receive Date: 20091123
  Receipt Date: 20090909
  Transmission Date: 20100525
  Serious: Yes (Other)
  Sender: FDA-Public Use
  Company Number: US-AMGEN-QUU338136

PATIENT
  Sex: Female

DRUGS (4)
  1. ENBREL [Suspect]
     Indication: RHEUMATOID ARTHRITIS
     Route: 058
     Dates: start: 20070302
  2. METHOTREXATE [Concomitant]
     Dates: start: 20070319
  3. PLAQUENIL [Concomitant]
  4. ATARAX [Concomitant]

REACTIONS (10)
  - ALOPECIA [None]
  - COUGH [None]
  - DEPRESSED MOOD [None]
  - FATIGUE [None]
  - GAIT DISTURBANCE [None]
  - IRRITABILITY [None]
  - OROPHARYNGEAL PAIN [None]
  - RHEUMATOID ARTHRITIS [None]
  - STRESS [None]
  - TEARFULNESS [None]
